FAERS Safety Report 25416515 (Version 1)
Quarter: 2025Q2

REPORT INFORMATION
  Report Type: Spontaneous
  Country: CH (occurrence: CH)
  Receive Date: 20250610
  Receipt Date: 20250610
  Transmission Date: 20250717
  Serious: Yes (Other)
  Sender: ASCENT PHARMACEUTICALS INC
  Company Number: CH-ASCENT-2025ASLIT00095

PATIENT
  Age: 52 Year
  Sex: Female

DRUGS (3)
  1. VENLAFAXINE [Suspect]
     Active Substance: VENLAFAXINE HYDROCHLORIDE
     Indication: Migraine
     Route: 065
  2. Estrogen gel [Concomitant]
     Indication: Product used for unknown indication
     Route: 065
  3. PROGESTERONE [Concomitant]
     Active Substance: PROGESTERONE
     Indication: Product used for unknown indication
     Route: 065

REACTIONS (3)
  - Cardiotoxicity [Recovered/Resolved]
  - Hypertrophic cardiomyopathy [Recovered/Resolved]
  - Product use in unapproved indication [Unknown]
